FAERS Safety Report 6464538-8 (Version None)
Quarter: 2009Q4

REPORT INFORMATION
  Report Type: 
  Country: None (occurrence: None)
  Receive Date: 20091201
  Receipt Date: 20091122
  Transmission Date: 20100525
  Serious: Yes (Other)
  Sender: FDA-Public Use
  Company Number: US-PFIZER INC-2009280800

PATIENT

DRUGS (1)
  1. COLESTID [Suspect]

REACTIONS (2)
  - CEREBROVASCULAR ACCIDENT [None]
  - DYSPHAGIA [None]
